FAERS Safety Report 25264044 (Version 1)
Quarter: 2025Q2

REPORT INFORMATION
  Report Type: Spontaneous
  Country: BE (occurrence: BE)
  Receive Date: 20250502
  Receipt Date: 20250502
  Transmission Date: 20250716
  Serious: Yes (Hospitalization)
  Sender: FRESENIUS KABI
  Company Number: None

PATIENT
  Age: 65 Year
  Sex: Female
  Weight: 61 kg

DRUGS (15)
  1. GEMCITABINE [Suspect]
     Active Substance: GEMCITABINE
     Indication: Product used for unknown indication
     Dates: start: 20240903
  2. CARBOPLATIN [Suspect]
     Active Substance: CARBOPLATIN
     Indication: Product used for unknown indication
     Dates: start: 20240903
  3. Emla 5% - Creme [Concomitant]
     Indication: Product used for unknown indication
  4. Bromazepam EG 6 MG [Concomitant]
     Indication: Product used for unknown indication
  5. Folavit 400 mcg Tablet [Concomitant]
     Indication: Product used for unknown indication
  6. LEVOTHYROXINE [Concomitant]
     Active Substance: LEVOTHYROXINE
     Indication: Product used for unknown indication
  7. LEVOTHYROXINE [Concomitant]
     Active Substance: LEVOTHYROXINE
  8. Lactulose EG 10 g, powder for solution [Concomitant]
  9. Litican 50 MG [Concomitant]
     Indication: Product used for unknown indication
  10. EDOXABAN TOSYLATE [Concomitant]
     Active Substance: EDOXABAN TOSYLATE
     Indication: Product used for unknown indication
  11. MOTILIUM [Concomitant]
     Active Substance: DOMPERIDONE
     Indication: Product used for unknown indication
  12. Paracetamol AB 1000 MG [Concomitant]
     Indication: Product used for unknown indication
  13. PARACETAMOL EG 1 G [Concomitant]
     Indication: Product used for unknown indication
  14. Simvastatin AB 20 MG [Concomitant]
     Indication: Product used for unknown indication
  15. Sipralexa 10 mg Filmtabletten [Concomitant]
     Indication: Product used for unknown indication

REACTIONS (3)
  - Chest discomfort [Recovered/Resolved]
  - Bronchospasm [Recovered/Resolved]
  - Dyspnoea [Recovered/Resolved]

NARRATIVE: CASE EVENT DATE: 20240903
